FAERS Safety Report 23093777 (Version 3)
Quarter: 2023Q4

REPORT INFORMATION
  Report Type: Report from Study
  Country: GB (occurrence: GB)
  Receive Date: 20231023
  Receipt Date: 20231127
  Transmission Date: 20240109
  Serious: No
  Sender: FDA-Public Use
  Company Number: GB-JNJFOC-20230961021

PATIENT
  Age: 5 Decade
  Sex: Male

DRUGS (2)
  1. STELARA [Suspect]
     Active Substance: USTEKINUMAB
     Indication: Psoriasis
     Route: 058
  2. STELARA [Suspect]
     Active Substance: USTEKINUMAB

REACTIONS (7)
  - Device issue [Unknown]
  - Product dose omission issue [Unknown]
  - Pain [Unknown]
  - Skin fissures [Unknown]
  - Wound [Unknown]
  - Skin exfoliation [Unknown]
  - Skin disorder [Unknown]

NARRATIVE: CASE EVENT DATE: 20230914
